FAERS Safety Report 25868372 (Version 1)
Quarter: 2025Q4

REPORT INFORMATION
  Report Type: Spontaneous
  Country: TW (occurrence: TW)
  Receive Date: 20251001
  Receipt Date: 20251001
  Transmission Date: 20260118
  Serious: Yes (Other)
  Sender: EXELIXIS
  Company Number: TW-IPSEN Group, Research and Development-2025-23697

PATIENT
  Age: 55 Year
  Sex: Male
  Weight: 71 kg

DRUGS (2)
  1. CABOMETYX [Suspect]
     Active Substance: CABOZANTINIB S-MALATE
     Indication: Renal cell carcinoma
     Dosage: 60 MG
     Dates: start: 20230320
  2. CABOMETYX [Suspect]
     Active Substance: CABOZANTINIB S-MALATE
     Dosage: UNK
     Dates: end: 20250303

REACTIONS (7)
  - Hepatitis [Unknown]
  - Hypertension [Unknown]
  - Palmar-plantar erythrodysaesthesia syndrome [Unknown]
  - Fatigue [Unknown]
  - Diarrhoea [Unknown]
  - Mouth ulceration [Unknown]
  - Disease progression [Unknown]
